FAERS Safety Report 9501204 (Version 1)
Quarter: 2013Q1

REPORT INFORMATION
  Report Type: Spontaneous
  Country: US (occurrence: None)
  Receive Date: 20130107
  Receipt Date: 20130107
  Transmission Date: 20140127
  Serious: No
  Sender: FDA-Public Use
  Company Number: PHEH2012US021430

PATIENT
  Age: 49 Year
  Sex: Female

DRUGS (1)
  1. GILENYA [Suspect]
     Route: 048

REACTIONS (8)
  - Optic neuritis [None]
  - Eye infection [None]
  - Eye swelling [None]
  - Eyelid oedema [None]
  - Pain in extremity [None]
  - Eye inflammation [None]
  - Eye pain [None]
  - Abasia [None]
